FAERS Safety Report 8920860 (Version 1)
Quarter: 2012Q4

REPORT INFORMATION
  Report Type: 
  Country: GB (occurrence: GB)
  Receive Date: 20121121
  Receipt Date: 20121121
  Transmission Date: 20130627
  Serious: Yes (Other)
  Sender: FDA-Public Use
  Company Number: GB-TEVA-370811ISR

PATIENT
  Age: 79 Year
  Sex: Male

DRUGS (2)
  1. BACLOFEN [Suspect]
     Dates: start: 201110
  2. TEGRETOL [Suspect]

REACTIONS (1)
  - Dysphagia [Unknown]
